FAERS Safety Report 7509606-4 (Version None)
Quarter: 2011Q2

REPORT INFORMATION
  Report Type: 
  Country: None (occurrence: None)
  Receive Date: 20110527
  Receipt Date: 20110509
  Transmission Date: 20111010
  Serious: No
  Sender: FDA-Public Use
  Company Number: US-B.I. PHARMACEUTICALS,INC./RIDGEFIELD-2011-BP-12665BP

PATIENT
  Sex: Male

DRUGS (8)
  1. TOPROL-XL [Concomitant]
     Indication: HYPERTENSION
     Dosage: 50 MG
     Route: 048
  2. ASPIRIN [Concomitant]
     Indication: CARDIAC DISORDER
  3. PRADAXA [Suspect]
     Indication: ATRIAL FIBRILLATION
     Dosage: 300 MG
     Route: 048
     Dates: start: 20110302
  4. DIOVAN [Concomitant]
     Indication: HYPERTENSION
     Dosage: 160 MG
  5. DIOVAN [Concomitant]
     Indication: CARDIAC DISORDER
  6. WARFARIN SODIUM [Concomitant]
     Indication: ATRIAL FIBRILLATION
     Dosage: 7.5 MG
     Route: 048
     Dates: start: 20110509
  7. LIPITOR [Concomitant]
     Indication: BLOOD CHOLESTEROL INCREASED
     Dosage: 10 MG
     Route: 048
  8. TOPROL-XL [Concomitant]
     Indication: CARDIAC DISORDER

REACTIONS (5)
  - MUSCULAR WEAKNESS [None]
  - PRURITUS [None]
  - RASH [None]
  - PAIN IN EXTREMITY [None]
  - DIZZINESS [None]
